FAERS Safety Report 8495013-7 (Version None)
Quarter: 2012Q3

REPORT INFORMATION
  Report Type: 
  Country: None (occurrence: None)
  Receive Date: 20120709
  Receipt Date: 20120628
  Transmission Date: 20120928
  Serious: Yes (Hospitalization)
  Sender: FDA-Public Use
  Company Number: US-JNJFOC-20120700397

PATIENT
  Sex: Female
  Weight: 43.55 kg

DRUGS (4)
  1. REMICADE [Suspect]
     Indication: CROHN'S DISEASE
     Route: 042
     Dates: start: 20120329
  2. REMICADE [Suspect]
     Route: 042
     Dates: start: 20120511, end: 20120511
  3. REMICADE [Suspect]
     Route: 042
     Dates: start: 20120401
  4. ZOFRAN [Concomitant]

REACTIONS (10)
  - HAEMOGLOBIN DECREASED [None]
  - TREMOR [None]
  - MIGRAINE [None]
  - VOMITING [None]
  - PYREXIA [None]
  - PAIN [None]
  - NAUSEA [None]
  - FATIGUE [None]
  - TENDERNESS [None]
  - HEADACHE [None]
